FAERS Safety Report 17143045 (Version 1)
Quarter: 2019Q4

REPORT INFORMATION
  Report Type: Spontaneous
  Country: DE (occurrence: DE)
  Receive Date: 20191211
  Receipt Date: 20191211
  Transmission Date: 20200122
  Serious: Yes (Hospitalization)
  Sender: FDA-Public Use
  Company Number: DE-SAMSUNG BIOEPIS-SB-2019-36577

PATIENT
  Age: 35 Year
  Sex: Female
  Weight: 78 kg

DRUGS (2)
  1. FLIXABI [Suspect]
     Active Substance: INFLIXIMAB
     Indication: CROHN^S DISEASE
     Route: 041
  2. TILIDIN COMP.  50/4 [Concomitant]
     Indication: ARTHRALGIA
     Dosage: LONG-TERM MEDICATION
     Route: 048

REACTIONS (6)
  - Sinus tachycardia [Recovering/Resolving]
  - Dyspnoea [Recovering/Resolving]
  - Flushing [Recovering/Resolving]
  - Product substitution issue [Recovering/Resolving]
  - Infusion related reaction [Recovering/Resolving]
  - Chest discomfort [Recovering/Resolving]

NARRATIVE: CASE EVENT DATE: 20190520
